FAERS Safety Report 13671220 (Version 1)
Quarter: 2017Q2

REPORT INFORMATION
  Report Type: Spontaneous
  Country: US (occurrence: US)
  Receive Date: 20170620
  Receipt Date: 20170620
  Transmission Date: 20170830
  Serious: No
  Sender: FDA-Public Use
  Company Number: US-ROCHE-1341745

PATIENT
  Age: 50 Year
  Sex: Female

DRUGS (6)
  1. IBUPROFEN. [Concomitant]
     Active Substance: IBUPROFEN
  2. XANAX [Concomitant]
     Active Substance: ALPRAZOLAM
  3. COLACE [Concomitant]
     Active Substance: DOCUSATE SODIUM
  4. NORVASC [Concomitant]
     Active Substance: AMLODIPINE BESYLATE
  5. XELODA [Suspect]
     Active Substance: CAPECITABINE
     Indication: PRODUCT USED FOR UNKNOWN INDICATION
     Dosage: 3 TABLETS TWICE DAILY, 14 DAYS ON, 7 DAYS OFF
     Route: 048
     Dates: start: 20130828
  6. LORATADINE. [Concomitant]
     Active Substance: LORATADINE

REACTIONS (1)
  - Pain of skin [Unknown]

NARRATIVE: CASE EVENT DATE: 20140128
